FAERS Safety Report 8196676-6 (Version None)
Quarter: 2012Q1

REPORT INFORMATION
  Report Type: 
  Country: None (occurrence: None)
  Receive Date: 20120309
  Receipt Date: 20120301
  Transmission Date: 20120608
  Serious: Yes (Hospitalization)
  Sender: FDA-Public Use
  Company Number: US-BAYER-2011-103497

PATIENT
  Age: 35 Year
  Sex: Female
  Weight: 100.8 kg

DRUGS (2)
  1. LOESTRIN 1.5/30 [Concomitant]
     Dosage: 20 MCG/24HR, HS
  2. YAZ [Suspect]
     Dosage: UNK
     Route: 048
     Dates: start: 20080601, end: 20090901

REACTIONS (7)
  - SYNCOPE [None]
  - ANXIETY [None]
  - GENERAL PHYSICAL HEALTH DETERIORATION [None]
  - EMOTIONAL DISTRESS [None]
  - PAIN [None]
  - CEREBROVASCULAR ACCIDENT [None]
  - ANHEDONIA [None]
